FAERS Safety Report 9763345 (Version 1)
Quarter: 2013Q4

REPORT INFORMATION
  Report Type: Spontaneous
  Country: US (occurrence: US)
  Receive Date: 20131216
  Receipt Date: 20131216
  Transmission Date: 20140711
  Serious: No
  Sender: FDA-Public Use
  Company Number: US-BIOGENIDEC-2013BI105398

PATIENT
  Age: 35 Year
  Sex: Female
  Weight: 72 kg

DRUGS (4)
  1. TECFIDERA [Suspect]
     Indication: PRODUCT USED FOR UNKNOWN INDICATION
     Route: 048
  2. GABAPENTIN [Concomitant]
     Route: 048
  3. YAZ TAB (NOS) [Concomitant]
     Route: 048
  4. VIT B CAP PLUS [Concomitant]
     Route: 048

REACTIONS (3)
  - Pain [Unknown]
  - Decreased appetite [Unknown]
  - Abdominal discomfort [Unknown]
